FAERS Safety Report 5027728-7 (Version None)
Quarter: 2006Q2

REPORT INFORMATION
  Report Type: 
  Country: None (occurrence: None)
  Receive Date: 20060614
  Receipt Date: 20060614
  Transmission Date: 20061013
  Serious: Yes (Hospitalization)
  Sender: FDA-Public Use
  Company Number: None

PATIENT
  Sex: Female

DRUGS (2)
  1. LISINOPRIL [Suspect]
     Indication: DIABETES MELLITUS
     Dates: start: 20060609, end: 20060611
  2. LISINOPRIL [Suspect]
     Indication: HYPERTENSION
     Dates: start: 20060609, end: 20060611

REACTIONS (12)
  - ABDOMINAL PAIN [None]
  - ARTHRALGIA [None]
  - DIARRHOEA [None]
  - DRUG HYPERSENSITIVITY [None]
  - EYELID OEDEMA [None]
  - FEELING HOT [None]
  - GASTRIC DISORDER [None]
  - MALAISE [None]
  - PAIN [None]
  - PHARMACEUTICAL PRODUCT COMPLAINT [None]
  - SWELLING FACE [None]
  - URTICARIA [None]
